FAERS Safety Report 9809957 (Version 2)
Quarter: 2015Q4

REPORT INFORMATION
  Report Type: Spontaneous
  Country: US (occurrence: US)
  Receive Date: 20140110
  Receipt Date: 20151228
  Transmission Date: 20160305
  Serious: Yes (Other)
  Sender: FDA-Public Use
  Company Number: US-SANOFI-AVENTIS-2013SA067788

PATIENT
  Age: 91 Year

DRUGS (2)
  1. PLAVIX [Suspect]
     Active Substance: CLOPIDOGREL BISULFATE
     Route: 065
     Dates: start: 20040601, end: 20110901
  2. ASPIRIN. [Suspect]
     Active Substance: ASPIRIN
     Route: 065

REACTIONS (3)
  - Gastrointestinal haemorrhage [Recovered/Resolved]
  - Anaemia [Unknown]
  - Ulcer haemorrhage [Recovered/Resolved]

NARRATIVE: CASE EVENT DATE: 20110929
